FAERS Safety Report 9785232 (Version 2)
Quarter: 2014Q1

REPORT INFORMATION
  Report Type: Spontaneous
  Country: US (occurrence: US)
  Receive Date: 20131227
  Receipt Date: 20140226
  Transmission Date: 20141002
  Serious: No
  Sender: FDA-Public Use
  Company Number: US-009507513-1312USA011430

PATIENT
  Sex: Female

DRUGS (6)
  1. DULERA [Suspect]
     Indication: ASTHMA
     Dosage: UNK UNK, BID
     Route: 055
     Dates: start: 2009
  2. XALATAN [Concomitant]
     Dosage: UNK
  3. ALPHAGAN P [Concomitant]
     Dosage: UNK
  4. ACCOLATE [Concomitant]
     Dosage: UNK
  5. CROMOLYN SODIUM - USP (WARRICK) [Concomitant]
     Dosage: UNK
  6. ALBUTEROL SULFATE [Concomitant]
     Dosage: UNK

REACTIONS (4)
  - Laryngeal disorder [Not Recovered/Not Resolved]
  - Drug dose omission [Unknown]
  - Product quality issue [Unknown]
  - No adverse event [Unknown]
